FAERS Safety Report 7934874-4 (Version None)
Quarter: 2011Q4

REPORT INFORMATION
  Report Type: 
  Country: None (occurrence: None)
  Receive Date: 20111122
  Receipt Date: 20111117
  Transmission Date: 20120403
  Serious: Yes (Other)
  Sender: FDA-Public Use
  Company Number: PHHY2011GR54343

PATIENT
  Age: 58 Year
  Sex: Female

DRUGS (1)
  1. EXTAVIA [Suspect]
     Indication: MULTIPLE SCLEROSIS
     Dosage: 0.25 ML, UNK
     Dates: start: 20110521

REACTIONS (5)
  - MUSCLE SPASTICITY [None]
  - DRUG INEFFECTIVE [None]
  - CONSTIPATION [None]
  - SYNCOPE [None]
  - TREMOR [None]
